FAERS Safety Report 21548412 (Version 2)
Quarter: 2022Q4

REPORT INFORMATION
  Report Type: Spontaneous
  Country: US (occurrence: US)
  Receive Date: 20221103
  Receipt Date: 20221118
  Transmission Date: 20230113
  Serious: Yes (Life-Threatening, Hospitalization)
  Sender: FDA-Public Use
  Company Number: US-TEVA-2022-US-2821388

PATIENT
  Age: 60 Year
  Sex: Female

DRUGS (5)
  1. CARBOPLATIN [Suspect]
     Active Substance: CARBOPLATIN
     Indication: Diffuse large B-cell lymphoma stage IV
     Route: 065
  2. RITUXIMAB [Suspect]
     Active Substance: RITUXIMAB
     Indication: Diffuse large B-cell lymphoma stage IV
     Route: 065
  3. ATROPINE [Suspect]
     Active Substance: ATROPINE
     Indication: Bradycardia
     Route: 065
  4. Ifosfomide [Concomitant]
     Indication: Diffuse large B-cell lymphoma stage IV
     Route: 065
  5. ETOPOSIDE [Concomitant]
     Active Substance: ETOPOSIDE
     Indication: Diffuse large B-cell lymphoma stage IV
     Route: 065

REACTIONS (2)
  - Tumour lysis syndrome [Unknown]
  - Drug ineffective [Unknown]
